FAERS Safety Report 17432964 (Version 6)
Quarter: 2021Q3

REPORT INFORMATION
  Report Type: Report from Study
  Country: US (occurrence: US)
  Receive Date: 20200219
  Receipt Date: 20210810
  Transmission Date: 20211014
  Serious: No
  Sender: FDA-Public Use
  Company Number: NVSC2020US035783

PATIENT
  Sex: Female

DRUGS (1)
  1. GLATOPA [Suspect]
     Active Substance: GLATIRAMER ACETATE
     Indication: PRODUCT USED FOR UNKNOWN INDICATION
     Dosage: UNK
     Route: 065

REACTIONS (11)
  - Injection site pain [Unknown]
  - Needle issue [Unknown]
  - Incorrect dose administered [Unknown]
  - Injection site swelling [Unknown]
  - Pain [Unknown]
  - Rash [Unknown]
  - Wrong technique in device usage process [Unknown]
  - Skin mass [Unknown]
  - Injection site pruritus [Unknown]
  - Injection site rash [Unknown]
  - Device breakage [Unknown]
